FAERS Safety Report 9980657 (Version 1)
Quarter: 2014Q1

REPORT INFORMATION
  Report Type: Spontaneous
  Country: US (occurrence: None)
  Receive Date: 20140305
  Receipt Date: 20140305
  Transmission Date: 20141002
  Serious: No
  Sender: FDA-Public Use
  Company Number: None

PATIENT
  Age: 47 Year
  Sex: Male

DRUGS (1)
  1. STIVARGA [Suspect]
     Route: 048
     Dates: start: 20140129

REACTIONS (4)
  - Palmar-plantar erythrodysaesthesia syndrome [None]
  - Dry skin [None]
  - Skin haemorrhage [None]
  - Skin fissures [None]
